FAERS Safety Report 12705618 (Version 1)
Quarter: 2016Q3

REPORT INFORMATION
  Report Type: Spontaneous
  Country: US (occurrence: US)
  Receive Date: 20160901
  Receipt Date: 20160901
  Transmission Date: 20161109
  Serious: Yes (Death, Hospitalization)
  Sender: FDA-Public Use
  Company Number: US-TEVA-687768USA

PATIENT
  Age: 12 Year
  Sex: Male

DRUGS (8)
  1. FENTANYL. [Suspect]
     Active Substance: FENTANYL
     Route: 065
  2. IBUPROFEN. [Suspect]
     Active Substance: IBUPROFEN
     Route: 065
  3. LASIX [Suspect]
     Active Substance: FUROSEMIDE
     Route: 065
  4. SALBUTAMOL SULFATE [Suspect]
     Active Substance: ALBUTEROL SULFATE
     Indication: ASTHMA
     Route: 065
     Dates: start: 199609
  5. PROVENTIL [Suspect]
     Active Substance: ALBUTEROL
     Indication: ASTHMA
     Route: 065
     Dates: start: 199609
  6. DIAMOX SEQUELS [Suspect]
     Active Substance: ACETAZOLAMIDE
     Indication: PYREXIA
     Route: 065
  7. METHYLPREDNISOLONE SODIUM SUCCINATE. [Suspect]
     Active Substance: METHYLPREDNISOLONE SODIUM SUCCINATE
     Indication: ASTHMA
     Route: 065
     Dates: start: 19970402
  8. TERBUTALINE [Suspect]
     Active Substance: TERBUTALINE
     Route: 065

REACTIONS (16)
  - Gastrointestinal haemorrhage [Fatal]
  - Pyrexia [Unknown]
  - Erosive duodenitis [Unknown]
  - Cardiogenic shock [Fatal]
  - Multiple organ dysfunction syndrome [Fatal]
  - Status asthmaticus [Fatal]
  - Hypotension [Unknown]
  - Lactic acidosis [Unknown]
  - Respiratory failure [Fatal]
  - Septic shock [Fatal]
  - Disseminated intravascular coagulation [Fatal]
  - Wheezing [Unknown]
  - Renal failure [Fatal]
  - Gastrointestinal necrosis [Fatal]
  - Dyspnoea [Unknown]
  - Hepatic failure [Fatal]

NARRATIVE: CASE EVENT DATE: 1997
